FAERS Safety Report 7489385-X (Version None)
Quarter: 2011Q2

REPORT INFORMATION
  Report Type: 
  Country: None (occurrence: None)
  Receive Date: 20110518
  Receipt Date: 20110505
  Transmission Date: 20111010
  Serious: Yes (Other)
  Sender: FDA-Public Use
  Company Number: US-CELGENEUS-163-20785-11051136

PATIENT

DRUGS (3)
  1. THALOMID [Suspect]
     Indication: MULTIPLE MYELOMA
     Dosage: 100 MILLIGRAM
     Route: 048
  2. THALOMID [Suspect]
     Dosage: 200-400MG
     Route: 048
  3. BEVACIZUMAB [Suspect]
     Indication: MULTIPLE MYELOMA
     Dosage: 10 MILLIGRAM/KILOGRAM
     Route: 051

REACTIONS (3)
  - LYMPHOPENIA [None]
  - FATIGUE [None]
  - PULMONARY HYPERTENSION [None]
